FAERS Safety Report 6099903-4 (Version None)
Quarter: 2009Q1

REPORT INFORMATION
  Report Type: 
  Country: None (occurrence: None)
  Receive Date: 20090303
  Receipt Date: 20090220
  Transmission Date: 20090719
  Serious: Yes (Death, Hospitalization)
  Sender: FDA-Public Use
  Company Number: PL-TEVA-175132ISR

PATIENT
  Sex: Male
  Weight: 80 kg

DRUGS (8)
  1. FOLINIC ACID [Suspect]
     Indication: COLORECTAL CANCER
     Dates: start: 20080703
  2. FLUOROURACIL [Suspect]
     Indication: COLORECTAL CANCER
     Dates: start: 20080703
  3. IRINOTECAN HYDROCHLORIDE [Suspect]
     Indication: COLORECTAL CANCER
     Dates: start: 20080703
  4. SUNITINIB (BLINDED TERAPY) [Suspect]
     Indication: COLORECTAL CANCER
     Dates: start: 20080703
  5. FENTANYL [Concomitant]
     Indication: PAIN
  6. ONDANSETRON [Concomitant]
     Indication: VOMITING
     Dates: start: 20080703, end: 20080705
  7. METOCLOPRAMIDE [Concomitant]
     Indication: VOMITING
     Dates: start: 20080703, end: 20080705
  8. ATROPINE [Concomitant]
     Indication: PREMEDICATION
     Dates: start: 20080703, end: 20080703

REACTIONS (1)
  - SEPSIS [None]
